FAERS Safety Report 12210818 (Version 1)
Quarter: 2016Q1

REPORT INFORMATION
  Report Type: Spontaneous
  Country: DK (occurrence: FR)
  Receive Date: 20160325
  Receipt Date: 20160325
  Transmission Date: 20160526
  Serious: Yes (Other)
  Sender: FDA-Public Use
  Company Number: FR-FRI-1000083426

PATIENT
  Age: 45 Year
  Sex: Female

DRUGS (1)
  1. ESCITALOPRAM [Suspect]
     Active Substance: ESCITALOPRAM OXALATE
     Indication: PRODUCT USED FOR UNKNOWN INDICATION
     Dosage: 10 MG
     Route: 048

REACTIONS (4)
  - Aneurysm [Unknown]
  - Arrhythmia [Unknown]
  - Electrocardiogram QT prolonged [Not Recovered/Not Resolved]
  - Cardiac arrest [Unknown]
